FAERS Safety Report 7937820-2 (Version None)
Quarter: 2011Q4

REPORT INFORMATION
  Report Type: 
  Country: None (occurrence: None)
  Receive Date: 20111123
  Receipt Date: 20111017
  Transmission Date: 20120403
  Serious: Yes (Life-Threatening, Hospitalization)
  Sender: FDA-Public Use
  Company Number: DE-MERCK-1109DEU00006

PATIENT
  Age: 68 Year
  Sex: Female
  Weight: 84 kg

DRUGS (8)
  1. IBUPROFEN [Concomitant]
     Route: 054
  2. SIMVASTATIN [Concomitant]
     Route: 048
  3. JANUMET [Suspect]
     Indication: TYPE 2 DIABETES MELLITUS
     Route: 048
     Dates: end: 20110816
  4. TRAMADOL HYDROCHLORIDE [Concomitant]
     Route: 054
  5. ASPIRIN [Concomitant]
     Route: 048
  6. PANTOPRAZOLE [Concomitant]
     Route: 048
  7. IMIPRAMINE HYDROCHLORIDE [Concomitant]
     Route: 048
  8. ALLOPURINOL [Concomitant]
     Route: 048

REACTIONS (11)
  - FATIGUE [None]
  - ANAEMIA VITAMIN B12 DEFICIENCY [None]
  - ABDOMINAL PAIN LOWER [None]
  - ADVERSE EVENT [None]
  - UTERINE POLYP [None]
  - DIVERTICULUM INTESTINAL [None]
  - HYPERTENSION [None]
  - RENAL FAILURE [None]
  - DEPRESSION [None]
  - DIZZINESS [None]
  - WEIGHT DECREASED [None]
